FAERS Safety Report 16249135 (Version 1)
Quarter: 2019Q2

REPORT INFORMATION
  Report Type: Spontaneous
  Country: FR (occurrence: FR)
  Receive Date: 20190429
  Receipt Date: 20190429
  Transmission Date: 20190711
  Serious: Yes (Hospitalization)
  Sender: FDA-Public Use
  Company Number: FR-ACCORD-124922

PATIENT
  Age: 55 Year
  Sex: Male
  Weight: 75 kg

DRUGS (2)
  1. ONDANSETRON ACCORD [Suspect]
     Active Substance: ONDANSETRON
     Indication: PREMEDICATION
     Dosage: STRENGTH: 2 MG/ML
     Route: 042
     Dates: start: 20190204, end: 20190204
  2. METHYLPREDNISOLONE MYLAN [Suspect]
     Active Substance: METHYLPREDNISOLONE
     Indication: PREMEDICATION
     Route: 042
     Dates: start: 20190204, end: 20190204

REACTIONS (2)
  - Anaphylactic reaction [Recovered/Resolved]
  - Thrombocytopenia [Recovered/Resolved]

NARRATIVE: CASE EVENT DATE: 20190204
